FAERS Safety Report 13132608 (Version 1)
Quarter: 2017Q1

REPORT INFORMATION
  Report Type: Spontaneous
  Country: CA (occurrence: CA)
  Receive Date: 20170120
  Receipt Date: 20170120
  Transmission Date: 20170428
  Serious: Yes (Life-Threatening, Hospitalization, Other)
  Sender: FDA-Public Use
  Company Number: CA-ASTRAZENECA-2017SE05000

PATIENT
  Age: 53 Year
  Sex: Female
  Weight: 60 kg

DRUGS (11)
  1. FORXIGA [Suspect]
     Active Substance: DAPAGLIFLOZIN
     Indication: TYPE 2 DIABETES MELLITUS
     Route: 048
  2. AMLODIPINE [Concomitant]
     Active Substance: AMLODIPINE BESYLATE
  3. VENLAFAXINE [Concomitant]
     Active Substance: VENLAFAXINE HYDROCHLORIDE
  4. CELECOXIB. [Concomitant]
     Active Substance: CELECOXIB
  5. ROSUVASTATIN. [Concomitant]
     Active Substance: ROSUVASTATIN
  6. AMITRIPTYLINE [Concomitant]
     Active Substance: AMITRIPTYLINE
  7. METFORMIN [Concomitant]
     Active Substance: METFORMIN HYDROCHLORIDE
  8. TYLENOL [Concomitant]
     Active Substance: ACETAMINOPHEN
  9. GLICLAZIDE [Concomitant]
     Active Substance: GLICLAZIDE
  10. PANTOPRAZOLE MAGNESIUM [Concomitant]
     Active Substance: PANTOPRAZOLE MAGNESIUM
  11. HYDROCHLOROTHIAZIDE/QUINAPRIL [Concomitant]

REACTIONS (1)
  - Acidosis [Unknown]
